FAERS Safety Report 16012923 (Version 1)
Quarter: 2019Q1

REPORT INFORMATION
  Report Type: Spontaneous
  Country: US (occurrence: US)
  Receive Date: 20190227
  Receipt Date: 20190227
  Transmission Date: 20190418
  Serious: Yes (Hospitalization, Other)
  Sender: FDA-Public Use
  Company Number: None

PATIENT
  Age: 47 Year
  Sex: Male
  Weight: 94.05 kg

DRUGS (3)
  1. PANTOPRAZOLE SODIUM DELAYED-RELEASE 40 MG [Suspect]
     Active Substance: PANTOPRAZOLE SODIUM
     Indication: GASTROOESOPHAGEAL REFLUX DISEASE
     Dosage: ?          QUANTITY:30 TABLET(S);?
     Route: 048
     Dates: start: 20190118, end: 20190215
  2. METAMUCIL [Concomitant]
     Active Substance: PLANTAGO SEED
  3. MEGAFOOD BLOOD BUILDER TABLETS (IRON TABLETS) [Concomitant]

REACTIONS (4)
  - Hypophagia [None]
  - Decreased activity [None]
  - Dyspepsia [None]
  - Dyspnoea [None]

NARRATIVE: CASE EVENT DATE: 20190215
